FAERS Safety Report 9735864 (Version 1)
Quarter: 2013Q4

REPORT INFORMATION
  Report Type: Spontaneous
  Country: US (occurrence: US)
  Receive Date: 20131206
  Receipt Date: 20131206
  Transmission Date: 20140711
  Serious: No
  Sender: FDA-Public Use
  Company Number: US-GILEAD-2009-0024205

PATIENT
  Sex: Female
  Weight: 94.35 kg

DRUGS (10)
  1. LETAIRIS [Suspect]
     Indication: PULMONARY ARTERIAL HYPERTENSION
     Route: 048
     Dates: start: 20090818, end: 20090824
  2. METFORMIN HCL [Concomitant]
  3. REVATIO [Concomitant]
  4. OXYGEN [Concomitant]
  5. DIGOXIN [Concomitant]
  6. SPIRONOLACTONE [Concomitant]
  7. NOVOLOG [Concomitant]
  8. CONSTULOSE [Concomitant]
  9. FERROUS SULFATE [Concomitant]
  10. POTASSIUM [Concomitant]

REACTIONS (1)
  - Fluid retention [Unknown]
